FAERS Safety Report 8425014-6 (Version None)
Quarter: 2012Q2

REPORT INFORMATION
  Report Type: 
  Country: None (occurrence: None)
  Receive Date: 20120605
  Receipt Date: 20120605
  Transmission Date: 20120825
  Serious: Yes (Hospitalization, Disabling, Other)
  Sender: FDA-Public Use
  Company Number: None

PATIENT
  Sex: Female
  Weight: 83.0083 kg

DRUGS (1)
  1. AZOPT [Suspect]
     Dosage: 1 DROP 2 TIMES A DAY OPHTHALMIC
     Route: 047
     Dates: start: 20120410, end: 20120416

REACTIONS (6)
  - SWELLING FACE [None]
  - EYE SWELLING [None]
  - EYE PAIN [None]
  - FACIAL PAIN [None]
  - SKIN DISCOLOURATION [None]
  - BURNING SENSATION [None]
